FAERS Safety Report 16561557 (Version 1)
Quarter: 2019Q3

REPORT INFORMATION
  Report Type: Spontaneous
  Country: IT (occurrence: IT)
  Receive Date: 20190711
  Receipt Date: 20190711
  Transmission Date: 20191004
  Serious: Yes (Other)
  Sender: FDA-Public Use
  Company Number: IT-PFIZER INC-2019297256

PATIENT
  Age: 81 Year
  Sex: Male

DRUGS (15)
  1. DEURSIL [Concomitant]
     Active Substance: URSODIOL
     Dosage: UNK
  2. MEDROL [METHYLPREDNISOLONE ACETATE] [Concomitant]
     Active Substance: METHYLPREDNISOLONE ACETATE
     Dosage: 16 MG, UNK
  3. LUVION [POTASSIUM CANRENOATE] [Concomitant]
     Active Substance: CANRENOATE POTASSIUM
     Dosage: 25 MG, UNK
  4. NITRO-DUR [Concomitant]
     Active Substance: NITROGLYCERIN
     Dosage: UNK
  5. NORMIX [Concomitant]
     Active Substance: RIFAXIMIN
     Dosage: UNK
  6. TERAPROST [Concomitant]
     Active Substance: TERAZOSIN HYDROCHLORIDE
     Dosage: UNK
  7. VALPRESSION [Concomitant]
     Active Substance: VALSARTAN
     Dosage: 160 MG, UNK
  8. ZADITEN [Concomitant]
     Active Substance: KETOTIFEN FUMARATE
     Dosage: UNK
  9. BREVA [Concomitant]
     Active Substance: ALBUTEROL\IPRATROPIUM
     Dosage: UNK
  10. FOLINA [CALCIUM FOLINATE] [Concomitant]
     Active Substance: LEUCOVORIN CALCIUM
     Dosage: UNK
  11. LASIX [Concomitant]
     Active Substance: FUROSEMIDE
     Dosage: UNK
  12. TRAVATAN [Concomitant]
     Active Substance: TRAVOPROST
     Dosage: 40 UG/ML,, UNK
  13. XANAX [Suspect]
     Active Substance: ALPRAZOLAM
     Indication: DEPRESSION
     Dosage: 0.5 MG, 1X/DAY
     Route: 048
     Dates: start: 20180611, end: 20180612
  14. RELVAR ELLIPTA [Concomitant]
     Active Substance: FLUTICASONE FUROATE\VILANTEROL TRIFENATATE
     Dosage: UNK
  15. XARELTO [Concomitant]
     Active Substance: RIVAROXABAN
     Dosage: 15 MG, UNK

REACTIONS (4)
  - Disorientation [Recovering/Resolving]
  - Sopor [Recovering/Resolving]
  - Confusional state [Recovering/Resolving]
  - Gait disturbance [Recovering/Resolving]

NARRATIVE: CASE EVENT DATE: 20180613
